FAERS Safety Report 18659265 (Version 2)
Quarter: 2021Q1

REPORT INFORMATION
  Report Type: Spontaneous
  Country: JP (occurrence: JP)
  Receive Date: 20201224
  Receipt Date: 20210315
  Transmission Date: 20210419
  Serious: Yes (Hospitalization, Other)
  Sender: FDA-Public Use
  Company Number: NVSJ2020JP014161

PATIENT
  Age: 82 Year
  Sex: Male
  Weight: 61 kg

DRUGS (6)
  1. EQUA TAB [Suspect]
     Active Substance: VILDAGLIPTIN
     Indication: TYPE 2 DIABETES MELLITUS
     Dosage: UNK
     Route: 048
     Dates: start: 2010, end: 20200330
  2. SUREPOST [Concomitant]
     Active Substance: REPAGLINIDE
     Indication: TYPE 2 DIABETES MELLITUS
     Dosage: UNK MG
     Route: 048
     Dates: start: 2010
  3. CANDESARTAN. [Concomitant]
     Active Substance: CANDESARTAN
     Indication: HYPERTENSION
     Dosage: 1 DF, QD
     Route: 048
  4. AMLODIPINE [Concomitant]
     Active Substance: AMLODIPINE BESYLATE
     Indication: HYPERTENSION
     Dosage: 1 DF, QD
     Route: 048
  5. SUREPOST [Concomitant]
     Active Substance: REPAGLINIDE
     Dosage: 0.25 MG
     Route: 048
     Dates: end: 20200721
  6. EQUMET [Suspect]
     Active Substance: METFORMIN HYDROCHLORIDE\VILDAGLIPTIN
     Indication: TYPE 2 DIABETES MELLITUS
     Dosage: 1 DF (METFORMIN HYDROCHLORIDE 250MG/ VILDAGLIPTIN 50MG), BID
     Route: 048
     Dates: start: 20200331, end: 20200721

REACTIONS (8)
  - Eosinophilia [Unknown]
  - Dermatitis [Unknown]
  - Erythema [Unknown]
  - Pemphigoid [Recovered/Resolved]
  - Skin exfoliation [Unknown]
  - Urticaria [Unknown]
  - Blister [Unknown]
  - Skin erosion [Unknown]

NARRATIVE: CASE EVENT DATE: 202004
